FAERS Safety Report 19301056 (Version 1)
Quarter: 2021Q2

REPORT INFORMATION
  Report Type: Spontaneous
  Country: FR (occurrence: FR)
  Receive Date: 20210525
  Receipt Date: 20210525
  Transmission Date: 20210717
  Serious: Yes (Death)
  Sender: FDA-Public Use
  Company Number: FR-AMNEAL PHARMACEUTICALS-2021-AMRX-01843

PATIENT

DRUGS (1)
  1. ADRENACLICK [Suspect]
     Active Substance: EPINEPHRINE
     Indication: BLOOD PRESSURE SYSTOLIC DECREASED
     Dosage: MORE THAN 0.2 MCG/KG/MIN
     Route: 065

REACTIONS (1)
  - Intestinal ischaemia [Fatal]
